FAERS Safety Report 7208708-X (Version None)
Quarter: 2010Q4

REPORT INFORMATION
  Report Type: 
  Country: None (occurrence: None)
  Receive Date: 20101222
  Receipt Date: 20101207
  Transmission Date: 20110411
  Serious: Yes (Hospitalization)
  Sender: FDA-Public Use
  Company Number: 1000017686

PATIENT
  Age: 77 Year
  Sex: Male

DRUGS (8)
  1. NEBIVOLOL (NEBIVOLOL HYDROCHLORIDE) [Suspect]
     Indication: ATRIAL FIBRILLATION
     Dosage: 5 MG (5 MG,1 IN 1 D),ORAL
     Route: 048
     Dates: start: 20101101, end: 20101126
  2. PREVISCAN (FLUINDIONE) [Suspect]
     Indication: ATRIAL FIBRILLATION
     Dosage: 20 MG (20 MG,1 IN 1 D),ORAL
     Route: 048
     Dates: start: 20101031, end: 20101125
  3. FLECAINE (FLECAINIDE ACETATE) [Suspect]
     Indication: ATRIAL FIBRILLATION
     Dosage: 100 MG (100 MG,1 IN 1 D),ORAL
     Route: 048
     Dates: start: 20101103, end: 20101126
  4. XATRAL (ALFUZOSIN) (ALFUZOSIN) [Concomitant]
  5. AZANTAC (RANITIDINE HYDROCHLORIDE) (RANITIDINE HYDROCHLORIDE) [Concomitant]
  6. RIVOTRIL (CLONAZEPAM) (DROPS (FOR ORAL USE)) (CLONAZEPAM) [Concomitant]
  7. DEPAKINE (VALPROIC ACID) (VALPROIC ACID) [Concomitant]
  8. TRIMEBUTINE (TRIMEBUTINE) (TRIMEBUTINE) [Concomitant]

REACTIONS (9)
  - CHOLELITHIASIS [None]
  - DRUG RASH WITH EOSINOPHILIA AND SYSTEMIC SYMPTOMS [None]
  - DYSURIA [None]
  - GENERAL PHYSICAL HEALTH DETERIORATION [None]
  - HAEMATURIA [None]
  - PLEURAL EFFUSION [None]
  - PSYCHOMOTOR RETARDATION [None]
  - PULMONARY FIBROSIS [None]
  - PURPURA [None]
